FAERS Safety Report 24570036 (Version 4)
Quarter: 2024Q4

REPORT INFORMATION
  Report Type: Spontaneous
  Country: US (occurrence: US)
  Receive Date: 20241031
  Receipt Date: 20241230
  Transmission Date: 20250115
  Serious: No
  Sender: PFIZER
  Company Number: US-PFIZER INC-PV202400140469

PATIENT
  Age: 58 Year
  Sex: Female

DRUGS (2)
  1. IBRANCE [Suspect]
     Active Substance: PALBOCICLIB
     Dosage: UNK, CYCLIC (7-DAY OFF PERIOD)
  2. PREDNISONE [Suspect]
     Active Substance: PREDNISONE
     Indication: Pneumonitis
     Dosage: UNK

REACTIONS (12)
  - Weight decreased [Unknown]
  - Hypergeusia [Unknown]
  - Dyspnoea [Recovering/Resolving]
  - Hyperglycaemia [Not Recovered/Not Resolved]
  - Dysstasia [Recovering/Resolving]
  - Gait disturbance [Recovering/Resolving]
  - Dermatitis contact [Recovering/Resolving]
  - Fatigue [Unknown]
  - Malaise [Unknown]
  - White blood cell count decreased [Unknown]
  - Asthenia [Unknown]
  - Diarrhoea [Unknown]
